FAERS Safety Report 7923438-4 (Version None)
Quarter: 2011Q4

REPORT INFORMATION
  Report Type: 
  Country: None (occurrence: None)
  Receive Date: 20111117
  Receipt Date: 20110203
  Transmission Date: 20120403
  Serious: No
  Sender: FDA-Public Use
  Company Number: US-AMGEN-USASP2011006678

PATIENT
  Age: 54 Year
  Sex: Female
  Weight: 77.098 kg

DRUGS (8)
  1. LASIX [Concomitant]
     Dosage: 40 MG, UNK
  2. VIVELLE [Concomitant]
     Dosage: 0.1 MG, UNK
  3. LISINOPRIL [Concomitant]
     Dosage: 40 MG, UNK
  4. AMILORID/HCTZ [Concomitant]
  5. MULTIVITAMIN                       /00097801/ [Concomitant]
  6. ENBREL [Suspect]
     Indication: PRODUCT USED FOR UNKNOWN INDICATION
     Dosage: 50 MG, QWK
     Route: 058
  7. LEXAPRO [Concomitant]
     Dosage: 20 MG, UNK
  8. NORCO [Concomitant]

REACTIONS (1)
  - INJECTION SITE CELLULITIS [None]
